FAERS Safety Report 12982989 (Version 1)
Quarter: 2016Q4

REPORT INFORMATION
  Report Type: Spontaneous
  Country: US (occurrence: US)
  Receive Date: 20161129
  Receipt Date: 20161129
  Transmission Date: 20170207
  Serious: No
  Sender: FDA-Public Use
  Company Number: US-MALLINCKRODT-T201600895

PATIENT
  Sex: Female
  Weight: 93 kg

DRUGS (11)
  1. FENTANYL TRANSDERMAL SYSTEM [Suspect]
     Active Substance: FENTANYL
     Dosage: 75 MCG; EVERY 72 HOURS
     Route: 062
     Dates: start: 201603
  2. TIZANIDINE. [Concomitant]
     Active Substance: TIZANIDINE
     Dosage: AT NIGHT
  3. FENTANYL TRANSDERMAL SYSTEM [Suspect]
     Active Substance: FENTANYL
     Indication: PAIN
     Dosage: 50 MCG; EVERY 48 HOURS
     Route: 062
     Dates: start: 201505, end: 201602
  4. LANTUS [Concomitant]
     Active Substance: INSULIN GLARGINE
  5. METOCLOPRAMIDE. [Concomitant]
     Active Substance: METOCLOPRAMIDE
     Dosage: 10 MG
  6. METHADONE [Concomitant]
     Active Substance: METHADONE HYDROCHLORIDE
     Dosage: 40 MG
  7. MORPHINE [Concomitant]
     Active Substance: MORPHINE
     Dosage: 40 MG
  8. LIDODERM [Concomitant]
     Active Substance: LIDOCAINE
  9. VICTOZA [Concomitant]
     Active Substance: LIRAGLUTIDE
  10. ATENOLOL. [Concomitant]
     Active Substance: ATENOLOL
     Dosage: 25 MG
  11. PREDNISONE. [Concomitant]
     Active Substance: PREDNISONE

REACTIONS (8)
  - Application site pain [Not Recovered/Not Resolved]
  - Incorrect drug administration duration [Not Recovered/Not Resolved]
  - Wrong technique in product usage process [Not Recovered/Not Resolved]
  - Drug ineffective [Not Recovered/Not Resolved]
  - Product adhesion issue [Not Recovered/Not Resolved]
  - Application site infection [Not Recovered/Not Resolved]
  - Lymphadenopathy [Not Recovered/Not Resolved]
  - Bacterial infection [Not Recovered/Not Resolved]

NARRATIVE: CASE EVENT DATE: 2015
